FAERS Safety Report 24324004 (Version 1)
Quarter: 2024Q3

REPORT INFORMATION
  Report Type: Spontaneous
  Country: MY (occurrence: MY)
  Receive Date: 20240916
  Receipt Date: 20240916
  Transmission Date: 20241017
  Serious: Yes (Other)
  Sender: ORGANON
  Company Number: MY-ORGANON-O2409MYS000947

PATIENT
  Sex: Female

DRUGS (2)
  1. ETONOGESTREL [Suspect]
     Active Substance: ETONOGESTREL
     Dosage: 1 IMPLANT
     Route: 059
     Dates: start: 202404
  2. ETONOGESTREL [Concomitant]
     Active Substance: ETONOGESTREL
     Dosage: 1 IMPLANT
     Route: 059
     Dates: start: 2021, end: 2024

REACTIONS (3)
  - Cavernous sinus thrombosis [Unknown]
  - Vaginal haemorrhage [Unknown]
  - Cervicitis [Unknown]

NARRATIVE: CASE EVENT DATE: 20240101
